FAERS Safety Report 17691767 (Version 3)
Quarter: 2020Q2

REPORT INFORMATION
  Report Type: Report from Study
  Country: CA (occurrence: CA)
  Receive Date: 20200422
  Receipt Date: 20200608
  Transmission Date: 20200714
  Serious: Yes (Other)
  Sender: FDA-Public Use
  Company Number: CA-BIOGEN-2020BI00861337

PATIENT
  Age: 55 Year
  Sex: Female

DRUGS (1)
  1. TYSABRI [Suspect]
     Active Substance: NATALIZUMAB
     Indication: MULTIPLE SCLEROSIS
     Dosage: INFUSED FOR OVER 1 HOUR
     Route: 042
     Dates: start: 20170925

REACTIONS (11)
  - Prescribed underdose [Unknown]
  - Gait disturbance [Unknown]
  - Gastrointestinal pain [Recovered/Resolved]
  - Oropharyngeal pain [Recovered/Resolved]
  - Abdominal distension [Recovered/Resolved]
  - Noninfective encephalitis [Unknown]
  - Productive cough [Unknown]
  - Stomatitis [Recovered/Resolved]
  - Gastrointestinal disorder [Unknown]
  - Agitation [Unknown]
  - Constipation [Recovered/Resolved]

NARRATIVE: CASE EVENT DATE: 202003
